FAERS Safety Report 19109526 (Version 1)
Quarter: 2021Q2

REPORT INFORMATION
  Report Type: Spontaneous
  Country: NL (occurrence: NL)
  Receive Date: 20210408
  Receipt Date: 20210408
  Transmission Date: 20210717
  Serious: Yes (Hospitalization)
  Sender: FDA-Public Use
  Company Number: NL-BAYER-2021-117372

PATIENT
  Sex: Male
  Weight: 1.57 kg

DRUGS (1)
  1. CIPROFLOXACIN. [Suspect]
     Active Substance: CIPROFLOXACIN
     Route: 064

REACTIONS (3)
  - Premature baby [None]
  - Foetal exposure during pregnancy [None]
  - Low birth weight baby [None]
